FAERS Safety Report 8273743-X (Version None)
Quarter: 2012Q2

REPORT INFORMATION
  Report Type: 
  Country: None (occurrence: None)
  Receive Date: 20120411
  Receipt Date: 20120331
  Transmission Date: 20120825
  Serious: Yes (Other)
  Sender: FDA-Public Use
  Company Number: US-BAYER-2011-006784

PATIENT
  Age: 50 Year
  Sex: Female
  Weight: 86.168 kg

DRUGS (2)
  1. YASMIN [Suspect]
     Indication: PREMENSTRUAL SYNDROME
     Dosage: UNK
  2. ZOCOR [Concomitant]

REACTIONS (15)
  - FEAR [None]
  - ENDOMETRIOSIS [None]
  - PSYCHOLOGICAL TRAUMA [None]
  - CEREBROVASCULAR ACCIDENT [None]
  - INJURY [None]
  - ANXIETY [None]
  - OVARIAN MASS [None]
  - DIZZINESS [None]
  - CONFUSIONAL STATE [None]
  - BALANCE DISORDER [None]
  - DEPRESSION [None]
  - FALL [None]
  - POLYCYSTIC OVARIES [None]
  - PAIN [None]
  - EMOTIONAL DISTRESS [None]
